FAERS Safety Report 16710956 (Version 2)
Quarter: 2019Q4

REPORT INFORMATION
  Report Type: Report from Study
  Country: TR (occurrence: TR)
  Receive Date: 20190816
  Receipt Date: 20191118
  Transmission Date: 20200122
  Serious: Yes (Hospitalization)
  Sender: FDA-Public Use
  Company Number: TR-ROCHE-2379253

PATIENT
  Age: 56 Year
  Sex: Female
  Weight: 62 kg

DRUGS (10)
  1. CARBOPLATIN. [Suspect]
     Active Substance: CARBOPLATIN
     Indication: OVARIAN CANCER
     Dosage: DATE OF MOST RECENT DOSE OF CARBOPLATIN (780 MG) PRIOR TO SAE ONSET ON 23/MAY/2019.?CARBOPLATIN AT A
     Route: 042
     Dates: start: 20180207
  2. ATEZOLIZUMAB. [Suspect]
     Active Substance: ATEZOLIZUMAB
     Indication: OVARIAN CANCER
     Dosage: DATE OF MOST RECENT DOSE (1200MG) OF ATEZOLIZUMAB PRIOR TO SAE ONSET ON 24/APR/2019.?ON DAY 1 OF EAC
     Route: 042
     Dates: start: 20180207
  3. ZYRTEC [Concomitant]
     Active Substance: CETIRIZINE HYDROCHLORIDE
     Indication: RASH
     Route: 065
     Dates: start: 20190306
  4. PRIVIGEN [Concomitant]
     Active Substance: HUMAN IMMUNOGLOBULIN G
     Indication: MYOPATHY
     Route: 065
     Dates: start: 20190801, end: 20190805
  5. PRIVIGEN [Concomitant]
     Active Substance: HUMAN IMMUNOGLOBULIN G
     Route: 065
     Dates: start: 20191007, end: 20191011
  6. PACLITAXEL. [Suspect]
     Active Substance: PACLITAXEL
     Indication: OVARIAN CANCER
     Dosage: DATE OF MOST RECENT DOSE OF PACLITAXEL (300 MG) PRIOR TO AE ONSET ON 23/MAY/2019.?ON DAY 1 OF EACH 2
     Route: 042
     Dates: start: 20180207
  7. CLEXANE [Concomitant]
     Active Substance: ENOXAPARIN SODIUM
     Indication: PROPHYLAXIS
     Route: 065
     Dates: start: 20190801, end: 20190808
  8. BEVACIZUMAB. [Suspect]
     Active Substance: BEVACIZUMAB
     Indication: OVARIAN CANCER
     Dosage: DATE OF MOST RECENT DOSE OF BEVACIZUMAB (945 MG) PRIOR TO SAE ONSET ON 24/APR/2019.
     Route: 042
     Dates: start: 20180228
  9. LEVOTIRON [Concomitant]
     Active Substance: LEVOTHYROXINE SODIUM
     Indication: HYPOTHYROIDISM
     Route: 065
     Dates: start: 20181101
  10. PHENIRAMINE [Concomitant]
     Active Substance: PHENIRAMINE
     Indication: RASH
     Route: 065
     Dates: start: 20190327

REACTIONS (1)
  - Neuropathy peripheral [Not Recovered/Not Resolved]

NARRATIVE: CASE EVENT DATE: 20190807
